FAERS Safety Report 12239520 (Version 1)
Quarter: 2016Q2

REPORT INFORMATION
  Report Type: Spontaneous
  Country: FR (occurrence: FR)
  Receive Date: 20160405
  Receipt Date: 20160405
  Transmission Date: 20160815
  Serious: Yes (Hospitalization)
  Sender: FDA-Public Use
  Company Number: FR-SA-2016SA065579

PATIENT
  Age: 70 Year
  Sex: Male

DRUGS (19)
  1. METHYLPREDNISOLONE. [Suspect]
     Active Substance: METHYLPREDNISOLONE
     Route: 048
     Dates: start: 20150910, end: 20150913
  2. CALCIUM FOLINATE [Concomitant]
     Active Substance: LEUCOVORIN CALCIUM
  3. LASILIX [Suspect]
     Active Substance: FUROSEMIDE
     Route: 042
     Dates: start: 20150910, end: 20150914
  4. METHOTREXATE [Suspect]
     Active Substance: METHOTREXATE
     Dosage: DOSE:3 GRAM(S)/SQUARE METER
     Route: 042
     Dates: start: 20150911, end: 20150911
  5. KIDROLASE [Concomitant]
     Active Substance: ASPARAGINASE
     Dosage: DOSE:6000 INTERNATIONAL UNIT(S)/SQUARE METER
     Dates: start: 20150912
  6. GLICLAZIDE [Suspect]
     Active Substance: GLICLAZIDE
     Route: 048
     Dates: end: 20150913
  7. PANTOPRAZOLE [Suspect]
     Active Substance: PANTOPRAZOLE SODIUM
     Route: 048
     Dates: end: 20150913
  8. IDARUBICIN [Suspect]
     Active Substance: IDARUBICIN
     Route: 065
     Dates: start: 20150911, end: 20150911
  9. AVODART [Concomitant]
     Active Substance: DUTASTERIDE
  10. METFORMIN [Suspect]
     Active Substance: METFORMIN HYDROCHLORIDE
     Route: 048
     Dates: end: 20150913
  11. KARDEGIC [Concomitant]
     Active Substance: ASPIRIN LYSINE
  12. ERWINASE [Concomitant]
     Active Substance: ASPARAGINASE ERWINIA CHRYSANTHEMI
  13. EMEND [Suspect]
     Active Substance: APREPITANT
     Route: 048
     Dates: start: 20150910, end: 20150912
  14. TAMSULOSIN [Concomitant]
     Active Substance: TAMSULOSIN
  15. ZELITREX [Concomitant]
     Active Substance: VALACYCLOVIR HYDROCHLORIDE
  16. ODRIK [Suspect]
     Active Substance: TRANDOLAPRIL
     Indication: HYPERTENSION
     Route: 048
     Dates: end: 20150913
  17. LIPANTHYL [Suspect]
     Active Substance: FENOFIBRATE
     Route: 048
     Dates: end: 20150912
  18. HUMALOG [Concomitant]
     Active Substance: INSULIN LISPRO
  19. MODUCREN [Suspect]
     Active Substance: AMILORIDE HYDROCHLORIDE\HYDROCHLOROTHIAZIDE\TIMOLOL MALEATE
     Indication: HYPERTENSION
     Route: 048
     Dates: end: 20150913

REACTIONS (1)
  - Acute kidney injury [Recovered/Resolved]

NARRATIVE: CASE EVENT DATE: 20150912
